FAERS Safety Report 9913480 (Version 3)
Quarter: 2014Q1

REPORT INFORMATION
  Report Type: Spontaneous
  Country: US (occurrence: US)
  Receive Date: 20140220
  Receipt Date: 20140324
  Transmission Date: 20141002
  Serious: Yes (Other)
  Sender: FDA-Public Use
  Company Number: US-SA-2014SA020771

PATIENT
  Age: 86 Year
  Sex: Female

DRUGS (11)
  1. APIDRA SOLOSTAR [Suspect]
     Indication: TYPE 2 DIABETES MELLITUS
     Dosage: FREQUENCY: 3-4 TIMES ON SLIDING SCALE?PRODUCT START DATE 5 YEARS
     Route: 058
  2. APIDRA SOLOSTAR [Suspect]
     Indication: TYPE 2 DIABETES MELLITUS
     Dosage: FREQUENCY: 3-4 TIMES ON SLIDING SCALE?PRODUCT START DATE 5 YEARS
     Route: 058
  3. SOLOSTAR [Suspect]
     Indication: TYPE 2 DIABETES MELLITUS
     Dosage: PRODUCT START DATE 5 YEARS
  4. SOLOSTAR [Suspect]
     Indication: TYPE 2 DIABETES MELLITUS
     Dosage: PRODUCT START DATE 5 YEARS
  5. ASPIRIN [Concomitant]
  6. AMLODIPINE [Concomitant]
  7. BENICAR [Concomitant]
  8. METOPROLOL [Concomitant]
  9. CLOPIDOGREL [Concomitant]
  10. SIMVASTATIN [Concomitant]
  11. LANTUS [Concomitant]
     Dosage: DOSE:37 UNIT(S)

REACTIONS (2)
  - Macular degeneration [Recovered/Resolved]
  - Blood glucose abnormal [Recovered/Resolved]
